FAERS Safety Report 7166115-2 (Version None)
Quarter: 2010Q4

REPORT INFORMATION
  Report Type: 
  Country: None (occurrence: None)
  Receive Date: 20101216
  Receipt Date: 20101208
  Transmission Date: 20110411
  Serious: Yes (Hospitalization, Other)
  Sender: FDA-Public Use
  Company Number: US-JNJFOC-20101204089

PATIENT
  Sex: Male
  Weight: 90.72 kg

DRUGS (2)
  1. DURAGESIC-100 [Suspect]
     Indication: ANGINA PECTORIS
     Route: 062
  2. FENTANYL [Suspect]
     Indication: ANGINA PECTORIS
     Route: 062

REACTIONS (5)
  - ANGINA PECTORIS [None]
  - APPLICATION SITE RASH [None]
  - DRUG DOSE OMISSION [None]
  - HERNIA [None]
  - WRONG TECHNIQUE IN DRUG USAGE PROCESS [None]
